FAERS Safety Report 4388213-9 (Version None)
Quarter: 2004Q2

REPORT INFORMATION
  Report Type: 
  Country: None (occurrence: None)
  Receive Date: 20040625
  Receipt Date: 20040612
  Transmission Date: 20050107
  Serious: Yes (Other)
  Sender: FDA-Public Use
  Company Number: 2004022432

PATIENT
  Age: 40 Year
  Sex: Female
  Weight: 77.1115 kg

DRUGS (14)
  1. NEURONTIN [Suspect]
     Indication: PAIN
     Dosage: 7200 MG (600 MG, 3 IN 1 D), ORAL
     Route: 048
  2. PROPACET (DEXTROPROPOXYPHENE NAPSILATE, PARACETAMOL) [Concomitant]
  3. ESTRATEST H.S. [Concomitant]
  4. PAROXETINE HCL [Concomitant]
  5. NORTRIPTYLINE HCL [Concomitant]
  6. BUSPIRONE HCL [Concomitant]
  7. CLONAZEPAM [Concomitant]
  8. DEXTROPROPOXYPHENE HYDROCHLORIDE (DEXTROPROPOXYPHENE HYDROCHLORIDE) [Concomitant]
  9. LAXATIVES (LAXATIVES) [Concomitant]
  10. CALCIUM CARBONATE (CALCIUM CARBONATE) [Concomitant]
  11. BECOSYM FORTE (NICOTINAMIDE, PYRIDOXINE HYDROCHLORIDE, RIBOFLAVIN, THI [Concomitant]
  12. MULTIVITAMINS (ASCORBIC ACID/ERGOCALCIFEROL/FOLIC ACID/NICOTINAMIDE/PA [Concomitant]
  13. CITALOPRAM HYDROCHLORIDE (CITALOPRAM HYDROCHLORIDE) [Concomitant]
  14. ALL OTHER THERAPEUTIC PRODUCTS [Concomitant]

REACTIONS (16)
  - AMNESIA [None]
  - ANAEMIA [None]
  - ASTIGMATISM [None]
  - CONSTIPATION [None]
  - DEPRESSION [None]
  - DYSARTHRIA [None]
  - ENDOMETRIOSIS [None]
  - FATIGUE [None]
  - FIBROMYALGIA [None]
  - INSOMNIA [None]
  - LIBIDO DECREASED [None]
  - MUSCLE SPASMS [None]
  - MUSCLE TWITCHING [None]
  - MYALGIA [None]
  - MYOSITIS [None]
  - VISUAL DISTURBANCE [None]
